FAERS Safety Report 8763372 (Version 1)
Quarter: 2012Q4

REPORT INFORMATION
  Report Type: 
  Country: US (occurrence: US)
  Receive Date: 20120831
  Receipt Date: 20120831
  Transmission Date: 20130627
  Serious: No
  Sender: FDA-Public Use
  Company Number: US-009507513-1208USA010718

PATIENT

DRUGS (5)
  1. VICTRELIS [Suspect]
     Indication: HEPATITIS C
     Dosage: 4 DF, tid
     Dates: start: 20120722
  2. REBETOL [Suspect]
  3. PEGASYS [Concomitant]
  4. VITAMINS [Concomitant]
  5. ASCORBIC ACID [Suspect]

REACTIONS (1)
  - Injection site hypertrophy [Not Recovered/Not Resolved]
